FAERS Safety Report 19458740 (Version 1)
Quarter: 2021Q2

REPORT INFORMATION
  Report Type: Report from Study
  Country: FR (occurrence: FR)
  Receive Date: 20210624
  Receipt Date: 20210624
  Transmission Date: 20210717
  Serious: Yes (Hospitalization)
  Sender: FDA-Public Use
  Company Number: FR-ROCHE-2851692

PATIENT
  Age: 65 Year
  Sex: Female
  Weight: 70 kg

DRUGS (4)
  1. INEXIUM [Concomitant]
     Active Substance: ESOMEPRAZOLE
  2. EZETROL [Concomitant]
     Active Substance: EZETIMIBE
  3. NIFEDIPINE. [Concomitant]
     Active Substance: NIFEDIPINE
  4. OBINUTUZUMAB. [Suspect]
     Active Substance: OBINUTUZUMAB
     Indication: MANTLE CELL LYMPHOMA
     Dosage: LAST ADMINISTRATION BEFORE ONSET OF SAE: 18/AUG/2020
     Route: 042
     Dates: start: 20170523

REACTIONS (3)
  - Raynaud^s phenomenon [Not Recovered/Not Resolved]
  - COVID-19 [Not Recovered/Not Resolved]
  - Neutropenia [Not Recovered/Not Resolved]

NARRATIVE: CASE EVENT DATE: 20210607
